FAERS Safety Report 7558454-8 (Version None)
Quarter: 2011Q2

REPORT INFORMATION
  Report Type: 
  Country: None (occurrence: None)
  Receive Date: 20110620
  Receipt Date: 20110614
  Transmission Date: 20111010
  Serious: Yes (Hospitalization)
  Sender: FDA-Public Use
  Company Number: US-GILEAD-2011-0039771

PATIENT
  Sex: Female
  Weight: 75.818 kg

DRUGS (13)
  1. LETAIRIS [Suspect]
     Indication: MITRAL VALVE STENOSIS
     Route: 048
  2. LETAIRIS [Suspect]
     Indication: DIASTOLIC DYSFUNCTION
  3. DILAUDID [Concomitant]
  4. QUININE SULFATE [Concomitant]
  5. ASPIRIN [Concomitant]
  6. LOPRESSOR [Concomitant]
  7. CALCIUM CARBONATE [Concomitant]
  8. WARFARIN SODIUM [Concomitant]
  9. KLOR-CON [Concomitant]
  10. TORSEMIDE [Concomitant]
  11. LANSOPRAZOLE [Concomitant]
  12. M.V.I. [Concomitant]
  13. LETAIRIS [Suspect]
     Indication: PULMONARY HYPERTENSION
     Route: 048
     Dates: start: 20110312

REACTIONS (2)
  - FLUID RETENTION [None]
  - GALLBLADDER OPERATION [None]
